FAERS Safety Report 14227692 (Version 1)
Quarter: 2017Q4

REPORT INFORMATION
  Report Type: Other
  Country: US (occurrence: US)
  Receive Date: 20171127
  Receipt Date: 20171127
  Transmission Date: 20180321
  Serious: No
  Sender: FDA-Public Use
  Company Number: US-ANTARES PHARMA, INC.-2017-REG-MX-0356

PATIENT
  Sex: Female

DRUGS (1)
  1. OTREXUP [Suspect]
     Active Substance: METHOTREXATE
     Indication: RHEUMATOID ARTHRITIS
     Dosage: 10 MG/0.4ML, QWK
     Route: 058

REACTIONS (4)
  - Drug ineffective [Unknown]
  - Device malfunction [Unknown]
  - Device deployment issue [Unknown]
  - Drug dose omission [Unknown]
